FAERS Safety Report 12211190 (Version 1)
Quarter: 2016Q1

REPORT INFORMATION
  Report Type: Spontaneous
  Country: US (occurrence: None)
  Receive Date: 20160324
  Receipt Date: 20160324
  Transmission Date: 20160526
  Serious: Yes (Hospitalization)
  Sender: FDA-Public Use
  Company Number: None

PATIENT
  Age: 75 Year
  Sex: Female

DRUGS (4)
  1. IBRANCE [Suspect]
     Active Substance: PALBOCICLIB
     Indication: BREAST CANCER
  2. VITAMIN D [Concomitant]
     Active Substance: CHOLECALCIFEROL
  3. OXYCODONE-ACETAMINOPHEN [Concomitant]
     Active Substance: ACETAMINOPHEN\OXYCODONE HYDROCHLORIDE
  4. FULVESTRANT [Concomitant]
     Active Substance: FULVESTRANT

REACTIONS (5)
  - Vomiting [None]
  - Neutropenia [None]
  - Therapy cessation [None]
  - Nausea [None]
  - Urinary tract infection [None]

NARRATIVE: CASE EVENT DATE: 20160323
